FAERS Safety Report 6138254-6 (Version None)
Quarter: 2009Q1

REPORT INFORMATION
  Report Type: 
  Country: None (occurrence: None)
  Receive Date: 20090327
  Receipt Date: 20090327
  Transmission Date: 20090719
  Serious: No
  Sender: FDA-Public Use
  Company Number: None

PATIENT
  Age: 4 Year
  Sex: Female
  Weight: 22.6799 kg

DRUGS (2)
  1. SINGULAIR [Suspect]
     Indication: INFECTION
     Dosage: ONE TABLET 1 TIME A DAY PO
     Route: 048
     Dates: start: 20081101, end: 20090316
  2. SINGULAIR [Suspect]
     Indication: SINUSITIS
     Dosage: ONE TABLET 1 TIME A DAY PO
     Route: 048
     Dates: start: 20081101, end: 20090316

REACTIONS (8)
  - ABDOMINAL PAIN [None]
  - ABNORMAL BEHAVIOUR [None]
  - CRYING [None]
  - INCREASED TENDENCY TO BRUISE [None]
  - INSOMNIA [None]
  - PSYCHOMOTOR HYPERACTIVITY [None]
  - RESTLESSNESS [None]
  - VOMITING [None]
